FAERS Safety Report 7854777-3 (Version None)
Quarter: 2011Q4

REPORT INFORMATION
  Report Type: 
  Country: None (occurrence: None)
  Receive Date: 20111026
  Receipt Date: 20111018
  Transmission Date: 20120403
  Serious: Yes (Other)
  Sender: FDA-Public Use
  Company Number: CA-BAYER-2011-099812

PATIENT
  Sex: Male

DRUGS (1)
  1. AVELOX [Suspect]
     Dosage: UNK
     Dates: start: 20100501

REACTIONS (47)
  - CHILLS [None]
  - HOT FLUSH [None]
  - SENSATION OF HEAVINESS [None]
  - MYASTHENIA GRAVIS [None]
  - VISION BLURRED [None]
  - PANIC ATTACK [None]
  - PARAESTHESIA [None]
  - NASAL CONGESTION [None]
  - ABDOMINAL DISCOMFORT [None]
  - MUSCLE CONTRACTIONS INVOLUNTARY [None]
  - OCULAR DISCOMFORT [None]
  - RENAL FAILURE [None]
  - TINNITUS [None]
  - LIMB DISCOMFORT [None]
  - ANXIETY [None]
  - PHYSICAL DISABILITY [None]
  - AMNESIA [None]
  - METEOROPATHY [None]
  - BALANCE DISORDER [None]
  - PAIN IN EXTREMITY [None]
  - THIRST [None]
  - VISUAL IMPAIRMENT [None]
  - HEAD DISCOMFORT [None]
  - NEUROPATHY PERIPHERAL [None]
  - DIARRHOEA [None]
  - HEADACHE [None]
  - SKIN DISCOLOURATION [None]
  - COORDINATION ABNORMAL [None]
  - ADVERSE EVENT [None]
  - NERVOUS SYSTEM DISORDER [None]
  - PALPITATIONS [None]
  - DISTURBANCE IN ATTENTION [None]
  - AURA [None]
  - CHEST PAIN [None]
  - PAROSMIA [None]
  - FEELING ABNORMAL [None]
  - DIZZINESS [None]
  - BLOOD URINE PRESENT [None]
  - MUSCULAR WEAKNESS [None]
  - FORMICATION [None]
  - SKIN DISORDER [None]
  - VITREOUS FLOATERS [None]
  - ABNORMAL DREAMS [None]
  - NIGHT SWEATS [None]
  - VEIN DISCOLOURATION [None]
  - SUICIDAL IDEATION [None]
  - CONVULSION [None]
